FAERS Safety Report 11642174 (Version 3)
Quarter: 2016Q1

REPORT INFORMATION
  Report Type: Report from Study
  Country: JP (occurrence: JP)
  Receive Date: 20151019
  Receipt Date: 20160307
  Transmission Date: 20160525
  Serious: Yes (Death, Other)
  Sender: FDA-Public Use
  Company Number: JP-SEATTLE GENETICS-2014MPI01289

PATIENT

DRUGS (18)
  1. LOXONIN [Concomitant]
     Active Substance: LOXOPROFEN SODIUM
     Dosage: 60 MG, UNK
     Route: 048
     Dates: start: 20150107, end: 20150107
  2. LOXONIN [Concomitant]
     Active Substance: LOXOPROFEN SODIUM
     Dosage: 60 MG, UNK
     Route: 048
     Dates: start: 20150128, end: 20150128
  3. ADCETRIS [Suspect]
     Active Substance: BRENTUXIMAB VEDOTIN
     Dosage: 1.8 MG/KG, Q21D
     Route: 041
     Dates: start: 20141217, end: 20150218
  4. BAKTAR [Concomitant]
     Active Substance: SULFAMETHOXAZOLE\TRIMETHOPRIM
     Dosage: UNK
     Route: 048
     Dates: end: 20150818
  5. LOXONIN [Concomitant]
     Active Substance: LOXOPROFEN SODIUM
     Dosage: 60 MG, UNK
     Route: 048
     Dates: start: 20150218, end: 20150218
  6. ACETAMINOPHEN. [Concomitant]
     Active Substance: ACETAMINOPHEN
     Dosage: UNK
     Route: 065
     Dates: start: 20140708, end: 20140708
  7. ACETAMINOPHEN. [Concomitant]
     Active Substance: ACETAMINOPHEN
     Dosage: UNK
     Route: 065
     Dates: start: 20140805, end: 20140805
  8. ADCETRIS [Suspect]
     Active Substance: BRENTUXIMAB VEDOTIN
     Indication: ANAPLASTIC LARGE-CELL LYMPHOMA
     Dosage: 1.8 MG/KG, Q21D
     Route: 041
     Dates: start: 20140513, end: 20140513
  9. ACETAMINOPHEN. [Concomitant]
     Active Substance: ACETAMINOPHEN
     Dosage: UNK
     Route: 065
     Dates: start: 20140610, end: 20140610
  10. LOXONIN [Concomitant]
     Active Substance: LOXOPROFEN SODIUM
     Indication: PROPHYLAXIS
     Dosage: 60 MG, UNK
     Route: 048
     Dates: start: 20140917, end: 20140917
  11. LOXONIN [Concomitant]
     Active Substance: LOXOPROFEN SODIUM
     Dosage: 60 MG, UNK
     Route: 048
     Dates: start: 20141029, end: 20141029
  12. LOXONIN [Concomitant]
     Active Substance: LOXOPROFEN SODIUM
     Dosage: 60 MG, UNK
     Route: 048
     Dates: start: 20141119, end: 20141119
  13. ADCETRIS [Suspect]
     Active Substance: BRENTUXIMAB VEDOTIN
     Dosage: 1.8 MG/KG, Q21D
     Route: 041
     Dates: start: 20140917, end: 20141119
  14. ACETAMINOPHEN. [Concomitant]
     Active Substance: ACETAMINOPHEN
     Indication: PROPHYLAXIS
     Dosage: UNK
     Route: 065
     Dates: start: 20140513, end: 20140513
  15. ADCETRIS [Suspect]
     Active Substance: BRENTUXIMAB VEDOTIN
     Dosage: 1.8 MG/KG, Q21D
     Route: 041
     Dates: start: 20140610, end: 20140805
  16. BAKTAR [Concomitant]
     Active Substance: SULFAMETHOXAZOLE\TRIMETHOPRIM
     Indication: INFECTION PROPHYLAXIS
     Dosage: UNK
     Route: 048
  17. LOXONIN [Concomitant]
     Active Substance: LOXOPROFEN SODIUM
     Dosage: 60 MG, UNK
     Route: 048
     Dates: start: 20141008, end: 20141008
  18. LOXONIN [Concomitant]
     Active Substance: LOXOPROFEN SODIUM
     Dosage: 60 MG, UNK
     Route: 048
     Dates: start: 20141217, end: 20141217

REACTIONS (9)
  - Inappropriate schedule of drug administration [Unknown]
  - Peripheral sensory neuropathy [Not Recovered/Not Resolved]
  - Eosinophil count increased [Recovered/Resolved]
  - Neutropenia [Recovered/Resolved]
  - Peripheral motor neuropathy [Not Recovered/Not Resolved]
  - Rash [Recovered/Resolved]
  - Gingival cancer [Fatal]
  - Infusion related reaction [Recovered/Resolved]
  - Neutrophil count decreased [Recovered/Resolved]

NARRATIVE: CASE EVENT DATE: 20140513
